FAERS Safety Report 9292560 (Version 1)
Quarter: 2013Q2

REPORT INFORMATION
  Report Type: Spontaneous
  Country: FR (occurrence: FR)
  Receive Date: 20130516
  Receipt Date: 20130516
  Transmission Date: 20140414
  Serious: Yes (Hospitalization)
  Sender: FDA-Public Use
  Company Number: FR-US-EMD SERONO, INC.-7209167

PATIENT
  Age: 52 Year
  Sex: Female

DRUGS (6)
  1. REBIF [Suspect]
     Indication: MULTIPLE SCLEROSIS
     Route: 058
     Dates: start: 2003
  2. REBIF [Suspect]
     Route: 058
     Dates: end: 201304
  3. REBIF [Suspect]
     Route: 058
     Dates: start: 20130430
  4. PROZAC [Concomitant]
     Indication: PRODUCT USED FOR UNKNOWN INDICATION
     Dates: start: 201301
  5. FRACTAL                            /01224501/ [Concomitant]
     Indication: HYPERCHOLESTEROLAEMIA
  6. SELENIUM [Concomitant]
     Indication: PRODUCT USED FOR UNKNOWN INDICATION

REACTIONS (7)
  - Lipoma [Recovering/Resolving]
  - Multiple sclerosis relapse [Unknown]
  - Feeling cold [Unknown]
  - Neck pain [Unknown]
  - Chills [Unknown]
  - Headache [Not Recovered/Not Resolved]
  - Injection site necrosis [Recovered/Resolved]
